FAERS Safety Report 20310939 (Version 1)
Quarter: 2022Q1

REPORT INFORMATION
  Report Type: Spontaneous
  Country: CN (occurrence: CN)
  Receive Date: 20220107
  Receipt Date: 20220107
  Transmission Date: 20220423
  Serious: Yes (Other)
  Sender: FDA-Public Use
  Company Number: CN-GUERBET-CN-20210363

PATIENT
  Age: 53 Year
  Sex: Female
  Weight: 44 kg

DRUGS (4)
  1. ETHIODIZED OIL [Suspect]
     Active Substance: ETHIODIZED OIL
     Indication: Transcatheter arterial chemoembolisation
     Route: 013
  2. EPIRUBICIN [Suspect]
     Active Substance: EPIRUBICIN
     Indication: Transcatheter arterial chemoembolisation
     Route: 013
  3. OXALIPLATIN [Concomitant]
     Active Substance: OXALIPLATIN
     Indication: Chemotherapy
     Route: 013
  4. GELATIN [Concomitant]
     Active Substance: GELATIN
     Indication: Transcatheter arterial chemoembolisation
     Route: 013

REACTIONS (6)
  - Blood pressure increased [Recovered/Resolved]
  - Headache [Recovered/Resolved]
  - Loss of consciousness [Recovered/Resolved]
  - Visual impairment [Recovered/Resolved]
  - Aspartate aminotransferase increased [Recovered/Resolved]
  - Alanine aminotransferase increased [Recovered/Resolved]
